FAERS Safety Report 24957186 (Version 1)
Quarter: 2025Q1

REPORT INFORMATION
  Report Type: Report from Study
  Country: PL (occurrence: PL)
  Receive Date: 20250211
  Receipt Date: 20250211
  Transmission Date: 20250409
  Serious: Yes (Death, Other)
  Sender: ABBVIE
  Company Number: PL-JNJFOC-20250192928

PATIENT

DRUGS (6)
  1. IMBRUVICA [Suspect]
     Active Substance: IBRUTINIB
     Indication: Chronic lymphocytic leukaemia
     Dosage: A TOTAL OF 15 CYCLES OF 28 DAYS EACH
     Route: 048
  2. VENETOCLAX [Suspect]
     Active Substance: VENETOCLAX
     Indication: Chronic lymphocytic leukaemia
     Dosage: WEEK 2
     Route: 048
  3. VENETOCLAX [Suspect]
     Active Substance: VENETOCLAX
     Indication: Chronic lymphocytic leukaemia
     Dosage: WEEK 4
     Route: 048
  4. VENETOCLAX [Suspect]
     Active Substance: VENETOCLAX
     Indication: Chronic lymphocytic leukaemia
     Dosage: WEEK 3
     Route: 048
  5. VENETOCLAX [Suspect]
     Active Substance: VENETOCLAX
     Indication: Chronic lymphocytic leukaemia
     Dosage: WEEK 1
     Route: 048
  6. VENETOCLAX [Suspect]
     Active Substance: VENETOCLAX
     Indication: Chronic lymphocytic leukaemia
     Route: 048

REACTIONS (30)
  - Chronic lymphocytic leukaemia [Fatal]
  - Pyrexia [Unknown]
  - Infusion related reaction [Unknown]
  - Cough [Unknown]
  - Anaemia [Unknown]
  - Thrombocytopenia [Unknown]
  - Constipation [Unknown]
  - Arrhythmia [Unknown]
  - Atrial fibrillation [Unknown]
  - Rash [Unknown]
  - Neutropenia [Unknown]
  - Pneumonia [Unknown]
  - Decreased appetite [Unknown]
  - Nausea [Unknown]
  - Vomiting [Unknown]
  - Upper respiratory tract infection [Unknown]
  - Infection [Fatal]
  - Diarrhoea [Unknown]
  - Hypertension [Unknown]
  - Arthralgia [Unknown]
  - Epistaxis [Unknown]
  - Tumour lysis syndrome [Unknown]
  - Blood disorder [Unknown]
  - Oedema peripheral [Unknown]
  - Hyperphosphataemia [Unknown]
  - Chills [Unknown]
  - Adverse event [Unknown]
  - Urinary tract infection [Unknown]
  - Fatigue [Unknown]
  - Cardiac failure [Unknown]
